FAERS Safety Report 8016391-9 (Version None)
Quarter: 2011Q4

REPORT INFORMATION
  Report Type: 
  Country: None (occurrence: None)
  Receive Date: 20111230
  Receipt Date: 20111228
  Transmission Date: 20120403
  Serious: Yes (Hospitalization)
  Sender: FDA-Public Use
  Company Number: US-VERTEX PHARMACEUTICALS INC.-AE-2011-005682

PATIENT
  Sex: Female

DRUGS (3)
  1. INCIVEK [Suspect]
     Indication: HEPATITIS C
     Route: 048
     Dates: end: 20111215
  2. RIBAVIRIN [Concomitant]
     Indication: HEPATITIS C
     Route: 048
     Dates: end: 20111215
  3. PEGASYS [Concomitant]
     Indication: HEPATITIS C
     Route: 058

REACTIONS (5)
  - DYSPNOEA [None]
  - HYPERTENSION [None]
  - CHEST DISCOMFORT [None]
  - ANXIETY [None]
  - ABNORMAL BEHAVIOUR [None]
